FAERS Safety Report 15930782 (Version 1)
Quarter: 2019Q1

REPORT INFORMATION
  Report Type: Spontaneous
  Country: US (occurrence: US)
  Receive Date: 20190207
  Receipt Date: 20190207
  Transmission Date: 20190417
  Serious: Yes (Other)
  Sender: FDA-Public Use
  Company Number: None

PATIENT
  Age: 52 Year
  Sex: Female
  Weight: 99 kg

DRUGS (1)
  1. EMGALITY [Suspect]
     Active Substance: GALCANEZUMAB-GNLM
     Indication: MIGRAINE
     Dosage: ?          QUANTITY:1 1PROFILED INJECTER;OTHER FREQUENCY:1 SHOT PER MONTH;?
     Route: 058
     Dates: start: 20190104, end: 20190201

REACTIONS (4)
  - Injection site swelling [None]
  - Injection site pain [None]
  - Injection site rash [None]
  - Injection site pruritus [None]

NARRATIVE: CASE EVENT DATE: 20190202
